FAERS Safety Report 7646772-4 (Version None)
Quarter: 2011Q3

REPORT INFORMATION
  Report Type: 
  Country: None (occurrence: None)
  Receive Date: 20110801
  Receipt Date: 20110722
  Transmission Date: 20111222
  Serious: Yes (Hospitalization)
  Sender: FDA-Public Use
  Company Number: SE-BRISTOL-MYERS SQUIBB COMPANY-15872781

PATIENT
  Age: 81 Year
  Sex: Female

DRUGS (14)
  1. ENALAPRIL MALEATE [Concomitant]
  2. OXASCAND [Concomitant]
  3. SOTALOL HCL [Suspect]
     Indication: ATRIAL FIBRILLATION
     Route: 048
     Dates: end: 20110429
  4. ZOPIKLON [Concomitant]
  5. ACETAMINOPHEN [Concomitant]
     Dosage: PANODIL FILM COAT TABS
  6. SALURES [Concomitant]
     Dosage: TABS
  7. NOVOMIX [Concomitant]
     Dosage: 1 DF= 30 UNITS NOS  NOVOMIX 30 FLEXPEN
  8. SIMVASTATIN [Concomitant]
  9. ATACAND [Suspect]
     Indication: ESSENTIAL HYPERTENSION
     Dosage: TABS
     Route: 048
     Dates: end: 20110429
  10. GABAPENTIN [Concomitant]
  11. NOVORAPID [Concomitant]
  12. METFORMIN HCL [Suspect]
     Indication: DIABETES MELLITUS
     Route: 048
  13. CITALOPRAM HYDROBROMIDE [Concomitant]
  14. OMEPRAZOLE [Concomitant]

REACTIONS (4)
  - HYPERKALAEMIA [None]
  - ATRIAL TACHYCARDIA [None]
  - BLOOD CREATININE INCREASED [None]
  - BRADYCARDIA [None]
